FAERS Safety Report 4617781-4 (Version None)
Quarter: 2005Q1

REPORT INFORMATION
  Report Type: 
  Country: None (occurrence: None)
  Receive Date: 20050324
  Receipt Date: 20050315
  Transmission Date: 20050727
  Serious: Yes (Other)
  Sender: FDA-Public Use
  Company Number: US-GLAXOSMITHKLINE-A0549829A

PATIENT
  Age: 69 Year
  Sex: Female
  Weight: 67 kg

DRUGS (8)
  1. CITRUCEL SUGAR-FREE SUSPENSION ORANGE [Suspect]
     Indication: GASTROINTESTINAL DISORDER
     Route: 048
     Dates: start: 20020101
  2. ASPIRIN [Suspect]
     Indication: ARTHRITIS
     Route: 048
  3. NAPROXEN [Suspect]
     Indication: ARTHRITIS
     Route: 048
  4. LEVOXYL [Concomitant]
     Indication: HYPOTHYROIDISM
     Route: 048
  5. GLUCOTROL XL [Concomitant]
     Route: 048
  6. CALCIUM GLUCONATE [Concomitant]
     Route: 048
  7. VITAMIN E [Concomitant]
  8. FISH OIL [Concomitant]
     Route: 048

REACTIONS (6)
  - DYSGEUSIA [None]
  - ERUCTATION [None]
  - HAEMATOCHEZIA [None]
  - SYNCOPE [None]
  - ULCER HAEMORRHAGE [None]
  - WEIGHT DECREASED [None]
